FAERS Safety Report 7632131-7 (Version None)
Quarter: 2011Q3

REPORT INFORMATION
  Report Type: 
  Country: None (occurrence: None)
  Receive Date: 20110725
  Receipt Date: 20110725
  Transmission Date: 20111222
  Serious: Yes (Other)
  Sender: FDA-Public Use
  Company Number: None

PATIENT
  Age: 56 Year
  Sex: Female
  Weight: 1358.5 kg

DRUGS (3)
  1. PREDNISONE [Suspect]
     Indication: SINUSITIS
     Dosage: FOLLOWED PACKAGE INSTR
     Route: 048
     Dates: start: 20110424, end: 20110501
  2. PREDNISONE [Concomitant]
     Indication: INFECTION
     Dosage: FOLLOWED PACKAGE INSTR
     Route: 048
     Dates: start: 20110503, end: 20110525
  3. PREDNISONE [Concomitant]
     Indication: VERTIGO
     Dosage: FOLLOWED PACKAGE INSTR
     Route: 048
     Dates: start: 20110503, end: 20110525

REACTIONS (6)
  - HYPOAESTHESIA [None]
  - BURNING SENSATION [None]
  - PARAESTHESIA [None]
  - ERYTHEMA [None]
  - OEDEMA PERIPHERAL [None]
  - FEELING HOT [None]
